FAERS Safety Report 8518572-4 (Version None)
Quarter: 2012Q3

REPORT INFORMATION
  Report Type: 
  Country: None (occurrence: None)
  Receive Date: 20120718
  Receipt Date: 20120523
  Transmission Date: 20120928
  Serious: No
  Sender: FDA-Public Use
  Company Number: US-BRISTOL-MYERS SQUIBB COMPANY-16620296

PATIENT
  Age: 39 Year
  Sex: Female

DRUGS (2)
  1. EPIPEN [Concomitant]
     Indication: FOOD ALLERGY
  2. COUMADIN [Suspect]
     Indication: THROMBOSIS
     Dosage: COUMADIN CAPSULES

REACTIONS (2)
  - COUGH [None]
  - DYSPNOEA [None]
